FAERS Safety Report 8886626 (Version 1)
Quarter: 2012Q4

REPORT INFORMATION
  Report Type: 
  Country: US (occurrence: US)
  Receive Date: 20121105
  Receipt Date: 20121105
  Transmission Date: 20130627
  Serious: No
  Sender: FDA-Public Use
  Company Number: US-PFIZER INC-2012274976

PATIENT
  Age: 52 Year
  Sex: Female
  Weight: 112 kg

DRUGS (2)
  1. LYRICA [Suspect]
     Indication: GUILLAIN-BARRE SYNDROME
     Dosage: 75mg one capsule in morning and 75mg two capsules in evening
     Dates: start: 200904
  2. LEXAPRO [Concomitant]
     Indication: PERIPHERAL NERVE INJURY
     Dosage: 10 mg, daily

REACTIONS (2)
  - Off label use [Unknown]
  - Pain [Not Recovered/Not Resolved]
